FAERS Safety Report 7706952-6 (Version None)
Quarter: 2011Q3

REPORT INFORMATION
  Report Type: 
  Country: None (occurrence: None)
  Receive Date: 20110824
  Receipt Date: 20110817
  Transmission Date: 20111222
  Serious: Yes (Other)
  Sender: FDA-Public Use
  Company Number: US-JNJFOC-20110608801

PATIENT
  Sex: Female

DRUGS (6)
  1. XALATAN [Concomitant]
     Indication: GLAUCOMA
     Dosage: DAILY
     Route: 047
  2. REMICADE [Suspect]
     Indication: ARTHRITIS
     Route: 042
     Dates: start: 20100101
  3. SYNTHROID [Concomitant]
     Indication: THYROID DISORDER
     Route: 048
  4. TIMOLOL MALEATE [Concomitant]
     Indication: GLAUCOMA
     Dosage: TWICE DAILY
     Route: 047
  5. HYDROCHLOROTHIAZIDE [Concomitant]
     Indication: BLOOD PRESSURE
     Dosage: DAILY
     Route: 048
  6. AVAPRO [Concomitant]
     Indication: BLOOD PRESSURE
     Route: 048

REACTIONS (4)
  - MENISCUS LESION [None]
  - ARTHRALGIA [None]
  - MUSCULOSKELETAL PAIN [None]
  - DISCOMFORT [None]
